FAERS Safety Report 20154094 (Version 1)
Quarter: 2021Q4

REPORT INFORMATION
  Report Type: Spontaneous
  Country: US (occurrence: None)
  Receive Date: 20211207
  Receipt Date: 20211207
  Transmission Date: 20220303
  Serious: Yes (Hospitalization, Other)
  Sender: FDA-Public Use
  Company Number: US-Hikma Pharmaceuticals USA Inc.-US-H14001-21-05160

PATIENT
  Age: 33 Year
  Sex: Male

DRUGS (2)
  1. METHAMPHETAMINE [Suspect]
     Active Substance: METHAMPHETAMINE
     Indication: Product used for unknown indication
     Dosage: UNKNOWN
     Route: 065
  2. BUPRENORPHINE\NALOXONE [Concomitant]
     Active Substance: BUPRENORPHINE\NALOXONE
     Indication: Drug use disorder
     Dosage: UNKNOWN
     Route: 065

REACTIONS (8)
  - Drug abuse [Unknown]
  - Substance-induced psychotic disorder [Recovering/Resolving]
  - Psychotic disorder [Recovering/Resolving]
  - Paranoia [Unknown]
  - Drug dependence [Recovered/Resolved]
  - Feeling abnormal [Unknown]
  - Hypervigilance [Unknown]
  - Condition aggravated [Unknown]
